FAERS Safety Report 6983807-6 (Version None)
Quarter: 2010Q3

REPORT INFORMATION
  Report Type: 
  Country: None (occurrence: None)
  Receive Date: 20100914
  Receipt Date: 20090212
  Transmission Date: 20110219
  Serious: No
  Sender: FDA-Public Use
  Company Number: US-WYE-H08197009

PATIENT
  Age: 67 Year
  Sex: Male
  Weight: 106.69 kg

DRUGS (3)
  1. ADVIL LIQUI-GELS [Suspect]
     Indication: BACK PAIN
     Dosage: 3 TABLETS FOUR TIMES PER DAY (AS DIRECTED BY HEALTHCARE PROFESSIONAL)
     Route: 048
     Dates: start: 20081201, end: 20090207
  2. ADVIL LIQUI-GELS [Suspect]
     Route: 048
     Dates: start: 20090208
  3. TRAMADOL [Concomitant]

REACTIONS (1)
  - CANDIDIASIS [None]
